FAERS Safety Report 25970751 (Version 1)
Quarter: 2025Q4

REPORT INFORMATION
  Report Type: Spontaneous
  Country: US (occurrence: US)
  Receive Date: 20251028
  Receipt Date: 20251028
  Transmission Date: 20260117
  Serious: Yes (Hospitalization, Other)
  Sender: NOVO NORDISK
  Company Number: US-NOVOPROD-1545953

PATIENT
  Age: 61 Year

DRUGS (3)
  1. LEVEMIR [Suspect]
     Active Substance: INSULIN DETEMIR
     Indication: Type 2 diabetes mellitus
     Dosage: 62 IU, QD
     Dates: start: 2015
  2. VICTOZA [Suspect]
     Active Substance: LIRAGLUTIDE
     Indication: Type 2 diabetes mellitus
     Dosage: 1.8 MG
     Route: 058
     Dates: start: 2013
  3. NOVOLOG [Suspect]
     Active Substance: INSULIN ASPART
     Indication: Type 2 diabetes mellitus
     Dosage: UNK
     Dates: start: 2013

REACTIONS (6)
  - Amnesia [Unknown]
  - Injury [Unknown]
  - Infection [Unknown]
  - Cerebral hypoperfusion [Unknown]
  - Nerve injury [Unknown]
  - Visual impairment [Unknown]

NARRATIVE: CASE EVENT DATE: 20180704
